FAERS Safety Report 25417592 (Version 1)
Quarter: 2025Q2

REPORT INFORMATION
  Report Type: Spontaneous
  Country: CA (occurrence: None)
  Receive Date: 20250609
  Receipt Date: 20250609
  Transmission Date: 20250716
  Serious: No
  Sender: FDA-CTU
  Company Number: None

PATIENT
  Age: 32 Year
  Sex: Female
  Weight: 78.75 kg

DRUGS (8)
  1. CETIRIZINE HYDROCHLORIDE [Suspect]
     Active Substance: CETIRIZINE HYDROCHLORIDE
     Indication: Mast cell activation syndrome
     Dosage: OTHER QUANTITY : 1 CAPSULE(S);?FREQUENCY : AT BEDTIME;?
     Route: 048
     Dates: start: 20250326, end: 20250608
  2. VYVANSE [Concomitant]
     Active Substance: LISDEXAMFETAMINE DIMESYLATE
  3. Dezvenlafazine 50mg [Concomitant]
  4. FAMOTIDINE [Concomitant]
     Active Substance: FAMOTIDINE
  5. Vitamin C 500mg [Concomitant]
  6. Vitamin D 4000 IU [Concomitant]
  7. B12 500mg [Concomitant]
  8. QUERCETIN [Concomitant]
     Active Substance: QUERCETIN

REACTIONS (9)
  - Somnolence [None]
  - Feeling abnormal [None]
  - Fatigue [None]
  - Dissociation [None]
  - Pruritus [None]
  - Formication [None]
  - Anxiety [None]
  - Panic attack [None]
  - Withdrawal syndrome [None]

NARRATIVE: CASE EVENT DATE: 20250603
